FAERS Safety Report 8575914 (Version 4)
Quarter: 2014Q1

REPORT INFORMATION
  Report Type: Report from Study
  Country: US (occurrence: US)
  Receive Date: 20120523
  Receipt Date: 20140213
  Transmission Date: 20141002
  Serious: Yes (Hospitalization, Other)
  Sender: FDA-Public Use
  Company Number: PHEH2012US002452

PATIENT
  Age: 53 Year
  Sex: Female

DRUGS (9)
  1. GILENYA [Suspect]
     Indication: RELAPSING-REMITTING MULTIPLE SCLEROSIS
     Dosage: 0.5 MG, QD
     Route: 048
     Dates: start: 20110519, end: 201302
  2. ESCITALOPRAM OXALATE [Concomitant]
     Dosage: 1 DF, QD
     Route: 048
  3. ERGOCALCIFEROL [Concomitant]
     Dosage: 5000 U, UNK
  4. AMPYRA [Concomitant]
     Dosage: 1 DF, QD
  5. LEXAPRO [Concomitant]
     Dosage: 10 MG, QD
  6. CIPRO [Concomitant]
     Dosage: 500 MG, BID
  7. CYANOCOBALAMIN [Concomitant]
     Dosage: 1000 UG/ML, UNK
     Route: 048
  8. CILOSTAZOL [Concomitant]
     Dosage: 100 MG, BID
  9. GABAPENTIN [Concomitant]
     Dosage: 800 UG, BID

REACTIONS (24)
  - Visual impairment [Unknown]
  - Headache [Recovering/Resolving]
  - Multiple sclerosis [Not Recovered/Not Resolved]
  - Chronic fatigue syndrome [Unknown]
  - Hemiparesis [Unknown]
  - Muscle spasticity [Unknown]
  - Joint range of motion decreased [Unknown]
  - Muscular weakness [Unknown]
  - Disturbance in attention [Unknown]
  - Balance disorder [Unknown]
  - Gait disturbance [Unknown]
  - Peroneal nerve palsy [Unknown]
  - Pain [Unknown]
  - Fatigue [Unknown]
  - Sensory loss [Unknown]
  - Vitamin D deficiency [Unknown]
  - Seasonal allergy [Unknown]
  - Temperature intolerance [Unknown]
  - Pollakiuria [Unknown]
  - Anaemia vitamin B12 deficiency [Unknown]
  - Migraine without aura [Unknown]
  - Oedema peripheral [Unknown]
  - Vision blurred [Not Recovered/Not Resolved]
  - Dizziness [Unknown]
